FAERS Safety Report 19821355 (Version 1)
Quarter: 2021Q3

REPORT INFORMATION
  Report Type: Spontaneous
  Country: US (occurrence: US)
  Receive Date: 20210909
  Receipt Date: 20210909
  Transmission Date: 20211014
  Serious: Yes (Disabling)
  Sender: FDA-Public Use
  Company Number: None

PATIENT
  Age: 74 Year
  Sex: Female
  Weight: 113.4 kg

DRUGS (10)
  1. EMERGEN C [Concomitant]
     Active Substance: MINERALS\VITAMINS
  2. ZINC. [Concomitant]
     Active Substance: ZINC
  3. SELENIUM [Concomitant]
     Active Substance: SELENIUM
  4. ARMOUR THYROID [Concomitant]
     Active Substance: THYROID, PORCINE
  5. OMEGA 3 [Concomitant]
     Active Substance: OMEGA-3 FATTY ACIDS
  6. LOSARTAN. [Concomitant]
     Active Substance: LOSARTAN
  7. SYNTHROID/LEVOTHYROXIA [Concomitant]
  8. PROTEIN SHAKE [Concomitant]
  9. MULTIVITAMIN [Concomitant]
     Active Substance: VITAMINS
  10. NP THYROID [Suspect]
     Active Substance: LEVOTHYROXINE\LIOTHYRONINE
     Indication: HYPOTHYROIDISM
     Dosage: ?          QUANTITY:60 MG MILLIGRAM(S);?
     Route: 048

REACTIONS (8)
  - Fatigue [None]
  - Malaise [None]
  - Product substitution issue [None]
  - Product complaint [None]
  - Lymphadenopathy [None]
  - Alopecia [None]
  - Headache [None]
  - Feeling abnormal [None]

NARRATIVE: CASE EVENT DATE: 20210726
